FAERS Safety Report 10922211 (Version 2)
Quarter: 2015Q1

REPORT INFORMATION
  Report Type: Report from Study
  Country: ES (occurrence: ES)
  Receive Date: 20150317
  Receipt Date: 20150324
  Transmission Date: 20150721
  Serious: Yes (Hospitalization, Other)
  Sender: FDA-Public Use
  Company Number: ES-ABBVIE-15P-144-1361478-00

PATIENT
  Age: 74 Year
  Sex: Male

DRUGS (1)
  1. DUODOPA [Suspect]
     Active Substance: CARBIDOPA\LEVODOPA
     Indication: PARKINSON^S DISEASE
     Dosage: CONTINUOS DOSE: 3 ML/H
     Route: 050
     Dates: start: 20140411, end: 20150313

REACTIONS (6)
  - Urinary tract infection [Unknown]
  - Dysphagia [Unknown]
  - Disorientation [Unknown]
  - Confusional state [Unknown]
  - Unintentional medical device removal [Unknown]
  - Meningoencephalitis herpetic [Unknown]

NARRATIVE: CASE EVENT DATE: 201503
